FAERS Safety Report 26077728 (Version 1)
Quarter: 2025Q4

REPORT INFORMATION
  Report Type: Report from Study
  Country: US (occurrence: US)
  Receive Date: 20251122
  Receipt Date: 20251122
  Transmission Date: 20260118
  Serious: Yes (Disabling)
  Sender: TAIHO ONCOLOGY INC
  Company Number: US-TAIHOP-2025-012478

PATIENT
  Age: 85 Year
  Sex: Female

DRUGS (1)
  1. INQOVI [Suspect]
     Active Substance: CEDAZURIDINE\DECITABINE
     Indication: Product used for unknown indication
     Dosage: DOSE AND FREQUENCY UNKNOWN; FOR 3 CONSECUTIVE DAYS; CYCLE 2 STARTED 30/OCT/2025
     Route: 048
     Dates: start: 20250925

REACTIONS (8)
  - Bedridden [Unknown]
  - Diarrhoea [Unknown]
  - Urinary tract infection [Unknown]
  - Arthralgia [Unknown]
  - Myalgia [Unknown]
  - Oral herpes [Unknown]
  - Inappropriate schedule of product administration [Unknown]
  - Feeling abnormal [Unknown]

NARRATIVE: CASE EVENT DATE: 20251117
